FAERS Safety Report 6830565-1 (Version None)
Quarter: 2010Q3

REPORT INFORMATION
  Report Type: 
  Country: None (occurrence: None)
  Receive Date: 20100712
  Receipt Date: 20100628
  Transmission Date: 20110219
  Serious: Yes (Hospitalization, Other)
  Sender: FDA-Public Use
  Company Number: US-ELI_LILLY_AND_COMPANY-US201006007472

PATIENT
  Age: 68 Year
  Sex: Male

DRUGS (4)
  1. EFFIENT [Suspect]
     Indication: ACUTE CORONARY SYNDROME
     Dosage: 60 MG, OTHER
  2. EFFIENT [Suspect]
     Dosage: 10 MG, DAILY (1/D)
  3. INTEGRILIN [Concomitant]
  4. BIVALIRUDIN [Concomitant]

REACTIONS (1)
  - CORONARY ARTERY THROMBOSIS [None]
